FAERS Safety Report 16623285 (Version 3)
Quarter: 2020Q3

REPORT INFORMATION
  Report Type: Spontaneous
  Country: AU (occurrence: AU)
  Receive Date: 20190724
  Receipt Date: 20200911
  Transmission Date: 20201102
  Serious: Yes (Other)
  Sender: FDA-Public Use
  Company Number: AU-009507513-1907AUS009978

PATIENT
  Age: 38 Year
  Sex: Female
  Weight: 52.9 kg

DRUGS (2)
  1. ELONVA [Concomitant]
     Active Substance: CORIFOLLITROPIN ALFA
     Indication: BLOOD FOLLICLE STIMULATING HORMONE
     Dosage: 150 MICROGRAM, ONCE OFF DOSE
     Route: 058
     Dates: start: 20190709, end: 20190709
  2. ORGALUTRAN [Suspect]
     Active Substance: GANIRELIX ACETATE
     Indication: IN VITRO FERTILISATION
     Dosage: 0.25 MICROGRAM, QD
     Route: 058
     Dates: start: 20190714, end: 20190714

REACTIONS (6)
  - Palpitations [Recovered/Resolved]
  - Tremor [Recovered/Resolved]
  - Dizziness [Recovered/Resolved]
  - Dyspnoea [Recovered/Resolved]
  - Pharyngeal swelling [Unknown]
  - Choking [Recovered/Resolved]

NARRATIVE: CASE EVENT DATE: 201907
